FAERS Safety Report 16174528 (Version 3)
Quarter: 2019Q3

REPORT INFORMATION
  Report Type: Spontaneous
  Country: US (occurrence: US)
  Receive Date: 20190409
  Receipt Date: 20190912
  Transmission Date: 20191004
  Serious: Yes (Other)
  Sender: FDA-Public Use
  Company Number: US-009507513-1904USA002426

PATIENT
  Age: 25 Year
  Sex: Female
  Weight: 61.22 kg

DRUGS (1)
  1. NEXPLANON [Suspect]
     Active Substance: ETONOGESTREL
     Indication: CONTRACEPTION
     Dosage: 3 YEAR IMPLANT IN LEFT ARM
     Route: 059
     Dates: start: 20160325

REACTIONS (6)
  - Incorrect product administration duration [Unknown]
  - Device dislocation [Not Recovered/Not Resolved]
  - Complication associated with device [Recovered/Resolved]
  - Complication of device removal [Unknown]
  - No adverse event [Unknown]
  - Device deployment issue [Unknown]

NARRATIVE: CASE EVENT DATE: 2016
